FAERS Safety Report 12861581 (Version 1)
Quarter: 2016Q4

REPORT INFORMATION
  Report Type: Spontaneous
  Country: US (occurrence: US)
  Receive Date: 20161019
  Receipt Date: 20161019
  Transmission Date: 20170207
  Serious: Yes (Other)
  Sender: FDA-Public Use
  Company Number: US-PFIZER INC-2016481070

PATIENT
  Sex: Male

DRUGS (1)
  1. XELJANZ [Suspect]
     Active Substance: TOFACITINIB CITRATE
     Indication: RHEUMATOID ARTHRITIS
     Dosage: 5 MG, UNK

REACTIONS (6)
  - Rheumatoid arthritis [Unknown]
  - Fatigue [Unknown]
  - Liver function test abnormal [Unknown]
  - Pain in extremity [Unknown]
  - Condition aggravated [Unknown]
  - Eye irritation [Unknown]
